FAERS Safety Report 24788532 (Version 1)
Quarter: 2024Q4

REPORT INFORMATION
  Report Type: Spontaneous
  Country: JP (occurrence: JP)
  Receive Date: 20241230
  Receipt Date: 20241230
  Transmission Date: 20250115
  Serious: Yes (Hospitalization)
  Sender: NOVARTIS
  Company Number: JP-002147023-NVSJ2024JP012861

PATIENT
  Sex: Male

DRUGS (6)
  1. TAFINLAR [Suspect]
     Active Substance: DABRAFENIB MESYLATE
     Indication: BRAF V600E mutation positive
     Dosage: 300 MG
     Route: 048
     Dates: start: 20241014, end: 20241110
  2. TAFINLAR [Suspect]
     Active Substance: DABRAFENIB MESYLATE
     Indication: Thyroid cancer
     Dosage: RESUMED AT 1-LEVEL DOSE REDUCTION, UNK
     Route: 048
     Dates: start: 20241117
  3. TAFINLAR [Suspect]
     Active Substance: DABRAFENIB MESYLATE
     Dosage: 2-LEVEL DOSE REDUCTION, UNK
     Route: 048
     Dates: start: 20241203
  4. MEKINIST [Suspect]
     Active Substance: TRAMETINIB DIMETHYL SULFOXIDE
     Indication: BRAF V600E mutation positive
     Dosage: 2 MG
     Route: 048
     Dates: start: 20241014, end: 20241110
  5. MEKINIST [Suspect]
     Active Substance: TRAMETINIB DIMETHYL SULFOXIDE
     Indication: Thyroid cancer
     Dosage: RESUMED AT 1-LEVEL DOSE REDUCTION, UNK
     Route: 048
     Dates: start: 20241117
  6. MEKINIST [Suspect]
     Active Substance: TRAMETINIB DIMETHYL SULFOXIDE
     Dosage: 2-LEVEL DOSE REDUCTION, UNK
     Route: 048
     Dates: start: 20241203

REACTIONS (3)
  - Gastric ulcer haemorrhage [Recovered/Resolved]
  - Faeces discoloured [Recovered/Resolved]
  - Pyrexia [Recovered/Resolved]

NARRATIVE: CASE EVENT DATE: 20241110
